FAERS Safety Report 23564788 (Version 3)
Quarter: 2024Q1

REPORT INFORMATION
  Report Type: Spontaneous
  Country: KR (occurrence: KR)
  Receive Date: 20240226
  Receipt Date: 20240321
  Transmission Date: 20240410
  Serious: No
  Sender: FDA-Public Use
  Company Number: KR-PFIZER INC-PV202300195319

PATIENT
  Age: 6 Year
  Sex: Female

DRUGS (2)
  1. GENOTROPIN [Suspect]
     Active Substance: SOMATROPIN
     Indication: Growth hormone deficiency
     Dosage: 2 IU, 6 TIMES/WEEK
     Dates: start: 202302
  2. GENOTROPIN [Suspect]
     Active Substance: SOMATROPIN
     Dosage: 2 IU

REACTIONS (2)
  - Poor quality device used [Unknown]
  - Product contamination physical [Unknown]
